FAERS Safety Report 7281723-6 (Version None)
Quarter: 2011Q1

REPORT INFORMATION
  Report Type: 
  Country: None (occurrence: None)
  Receive Date: 20110208
  Receipt Date: 20110207
  Transmission Date: 20110831
  Serious: Yes (Other)
  Sender: FDA-Public Use
  Company Number: CA-ABBOTT-10P-028-0684812-00

PATIENT
  Sex: Male
  Weight: 81.72 kg

DRUGS (13)
  1. MESALAMINE [Concomitant]
     Indication: PRODUCT USED FOR UNKNOWN INDICATION
     Route: 048
  2. LANSOPRAZOLE [Concomitant]
     Indication: PRODUCT USED FOR UNKNOWN INDICATION
     Dosage: 30MG DAILY
     Route: 048
  3. PREDNISONE [Concomitant]
     Indication: PRODUCT USED FOR UNKNOWN INDICATION
     Dosage: 5-5MG TABLETS DAILY
     Route: 048
  4. OXYCODONE HCL AND ACETAMINOPHEN [Concomitant]
     Indication: PAIN
     Route: 048
  5. PEPCID COMPLETE [Concomitant]
     Indication: GASTRIC DISORDER
     Route: 048
  6. COENZYME Q10 [Concomitant]
     Indication: PRODUCT USED FOR UNKNOWN INDICATION
     Route: 048
  7. MICARDIS [Concomitant]
     Indication: CARDIAC DISORDER
     Route: 048
  8. ZOPLICONE [Concomitant]
     Indication: INSOMNIA
     Dosage: 7.5 MG 1 TO 2 TABLETS AS NEEDED
     Route: 048
  9. CRESTOR [Concomitant]
     Indication: BLOOD CHOLESTEROL
     Route: 048
  10. PROBIOTIC CAPSULES [Concomitant]
     Indication: PRODUCT USED FOR UNKNOWN INDICATION
     Route: 048
  11. ASPIRIN [Concomitant]
     Indication: PRODUCT USED FOR UNKNOWN INDICATION
     Route: 048
  12. HUMIRA [Suspect]
     Indication: COLITIS ULCERATIVE
     Route: 058
     Dates: start: 20101101
  13. ACTONEL [Concomitant]
     Indication: HYPERTENSION
     Dosage: 50 MG, 1/2 TABLET
     Route: 048

REACTIONS (1)
  - AORTIC ANEURYSM [None]
